FAERS Safety Report 19572955 (Version 4)
Quarter: 2021Q3

REPORT INFORMATION
  Report Type: Spontaneous
  Country: DE (occurrence: DE)
  Receive Date: 20210716
  Receipt Date: 20210929
  Transmission Date: 20211014
  Serious: Yes (Death, Other)
  Sender: FDA-Public Use
  Company Number: DE-TAKEDA-2021TUS042823

PATIENT
  Age: 80 Year
  Sex: Male
  Weight: 69 kg

DRUGS (88)
  1. LANSOPRAZOLE. [Suspect]
     Active Substance: LANSOPRAZOLE
     Dosage: 30 MG, QD
     Route: 048
  2. DISTIGMINE [Suspect]
     Active Substance: DISTIGMINE BROMIDE
     Indication: DYSPNOEA
     Dosage: 1 IU, QD
     Route: 048
  3. NOREPINEPHRINE BITARTRATE. [Suspect]
     Active Substance: NOREPINEPHRINE BITARTRATE
     Indication: STRESS
     Dosage: 3 MILLIGRAM, QD
     Route: 048
  4. MELATONIN [Suspect]
     Active Substance: MELATONIN
     Dosage: UNK
     Route: 048
  5. ARANESP [Suspect]
     Active Substance: DARBEPOETIN ALFA
     Dosage: 0.75 UG, QOW
     Route: 042
  6. BISACODYL. [Suspect]
     Active Substance: BISACODYL
     Dosage: 10 MILLIGRAM, QD
     Route: 054
  7. ATROVENT [Suspect]
     Active Substance: IPRATROPIUM BROMIDE
     Indication: DYSPNOEA
     Dosage: UNK
     Route: 065
  8. SODIUM PICOSULFATE [Suspect]
     Active Substance: SODIUM PICOSULFATE
     Indication: CONSTIPATION
     Dosage: 10 MILLIGRAM, PRN
     Route: 054
  9. AMIODARONE HYDROCHLORIDE. [Suspect]
     Active Substance: AMIODARONE HYDROCHLORIDE
     Indication: DRUG THERAPY
     Dosage: 150 MG, QD
     Route: 042
  10. WARFARIN SODIUM. [Suspect]
     Active Substance: WARFARIN SODIUM
     Indication: THROMBOSIS
     Dosage: 2 G, QD
     Route: 048
  11. VASOPRESSIN. [Suspect]
     Active Substance: VASOPRESSIN
     Dosage: 250 MILLILITER, QD
     Route: 042
  12. HEPARIN SODIUM IN DEXTROSE [Suspect]
     Active Substance: HEPARIN SODIUM
     Indication: ANTICOAGULANT THERAPY
     Dosage: 50 MILLILITER, QD
     Route: 042
  13. HEPARIN SODIUM IN DEXTROSE [Suspect]
     Active Substance: HEPARIN SODIUM
     Dosage: 50 MILLILITER, QD
     Route: 042
  14. SODIUM PHOSPHATE MONOBASIC [Suspect]
     Active Substance: SODIUM PHOSPHATE, MONOBASIC
     Indication: CONSTIPATION
     Dosage: 133 ML, PRN
     Route: 054
  15. LANSOPRAZOLE. [Suspect]
     Active Substance: LANSOPRAZOLE
     Indication: ANTACID THERAPY
     Dosage: 30 MG, QD
     Route: 048
  16. BISACODYL. [Suspect]
     Active Substance: BISACODYL
     Indication: CONSTIPATION
     Dosage: 10 MG, PRN
     Route: 054
  17. GLUCOSE;HEPARIN SODIUM [Suspect]
     Active Substance: DEXTROSE\HEPARIN SODIUM
     Indication: ANTICOAGULANT THERAPY
     Dosage: 50 ML
     Route: 042
  18. HYDROMORPHONE HYDROCHLORIDE. [Suspect]
     Active Substance: HYDROMORPHONE HYDROCHLORIDE
     Indication: ANALGESIC THERAPY
     Dosage: 6 MILLIGRAM, Q6HR
     Route: 058
  19. HYDROMORPHONE HYDROCHLORIDE. [Suspect]
     Active Substance: HYDROMORPHONE HYDROCHLORIDE
     Dosage: 1 MILLIGRAM, Q4HR
     Route: 058
  20. INSULIN ASPART [Suspect]
     Active Substance: INSULIN ASPART
     Dosage: UNK
     Route: 058
  21. DULCOLAX NOS [Suspect]
     Active Substance: BISACODYL OR DOCUSATE SODIUM
     Indication: CONSTIPATION
     Dosage: 10 MG, QD
     Route: 054
  22. IPRATROPIUM BROMIDE. [Suspect]
     Active Substance: IPRATROPIUM BROMIDE
     Dosage: 1 DOSAGE FORM, QD
     Route: 065
  23. DL?ALPHA TOCOPHEROL [Suspect]
     Active Substance: .ALPHA.-TOCOPHEROL, DL-
     Indication: NUTRITIONAL SUPPLEMENTATION
     Dosage: 12.5 GRAM, QD
     Route: 042
  24. BETAMETHASONE. [Suspect]
     Active Substance: BETAMETHASONE
     Indication: SWELLING
     Dosage: 10 DOSAGE FORM, PRN
     Route: 061
  25. ARANESP [Suspect]
     Active Substance: DARBEPOETIN ALFA
     Dosage: 1 IN 1CYCLICAL
     Route: 042
  26. CEFTRIAXONE SODIUM. [Suspect]
     Active Substance: CEFTRIAXONE SODIUM
     Indication: BACTERIAL INFECTION
     Dosage: 2 G, QD
     Route: 042
  27. INSULIN DEGLUDEC [Suspect]
     Active Substance: INSULIN DEGLUDEC
     Indication: DIABETES MELLITUS
     Dosage: UNK
     Route: 058
  28. WARFARIN SODIUM. [Suspect]
     Active Substance: WARFARIN SODIUM
     Dosage: 2 ML, QD
     Route: 048
  29. DOBUTAMINE HYDROCHLORIDE. [Suspect]
     Active Substance: DOBUTAMINE HYDROCHLORIDE
     Indication: CARDIOGENIC SHOCK
     Dosage: UNK
     Route: 042
  30. DEXTROSE 5% AND 0.9% NORMAL SALINE [Suspect]
     Active Substance: DEXTROSE\SODIUM CHLORIDE
     Indication: NUTRITIONAL SUPPLEMENTATION
     Dosage: 12.5 G, QD
     Route: 042
  31. METAMIZOLE SODIUM [Suspect]
     Active Substance: METAMIZOLE SODIUM
     Dosage: 5 MILLIGRAM, QD
     Route: 042
  32. PAULLINIA CUPANA [Suspect]
     Active Substance: HERBALS\PAULLINIA CUPANA SEED
     Indication: NUTRITIONAL SUPPLEMENTATION
     Dosage: 12.5 MILLIGRAM
     Route: 065
  33. MANNITOL. [Suspect]
     Active Substance: MANNITOL
     Indication: NUTRITIONAL SUPPLEMENTATION
     Dosage: 12.5 MILLIGRAM
     Route: 065
  34. 405 (LANTHANUM CARBONATE) [Suspect]
     Active Substance: LANTHANUM CARBONATE
     Indication: BLOOD PHOSPHORUS INCREASED
     Dosage: 500 MG, QD
     Route: 048
  35. METRONIDAZOLE. [Suspect]
     Active Substance: METRONIDAZOLE
     Indication: BACTERIAL INFECTION
     Dosage: 500 MG, TID
     Route: 048
  36. ARANESP [Suspect]
     Active Substance: DARBEPOETIN ALFA
     Indication: ANAEMIA
     Dosage: 1.42 UG, QW
     Route: 042
  37. GABAPENTIN. [Suspect]
     Active Substance: GABAPENTIN
     Dosage: UNK
     Route: 065
  38. SIMVASTATIN. [Suspect]
     Active Substance: SIMVASTATIN
     Indication: BLOOD CHOLESTEROL INCREASED
     Dosage: 40 MG, QD
     Route: 048
  39. ALLOPURINOL. [Suspect]
     Active Substance: ALLOPURINOL
     Dosage: 1 DF, QD
     Route: 048
  40. DALTEPARIN SODIUM [Suspect]
     Active Substance: DALTEPARIN SODIUM
     Indication: PULMONARY EMBOLISM
     Dosage: UNK
     Route: 065
  41. HEPARIN SODIUM IN DEXTROSE [Suspect]
     Active Substance: HEPARIN SODIUM
     Dosage: 250 MILLILITER, QD
     Route: 042
  42. FLUTICASONE FUROATE [Suspect]
     Active Substance: FLUTICASONE FUROATE
     Indication: PRODUCT USED FOR UNKNOWN INDICATION
     Dosage: UNK
     Route: 065
  43. UMECLIDINIUM BROMIDE;VILANTEROL TRIFENATATE [Suspect]
     Active Substance: UMECLIDINIUM BROMIDE\VILANTEROL TRIFENATATE
     Indication: DYSPNOEA
     Dosage: 1 IU, QD
     Route: 048
  44. INSULIN ASPART [Suspect]
     Active Substance: INSULIN ASPART
     Indication: DIABETES MELLITUS
     Dosage: UNK
     Route: 058
  45. SODIUM CITRATE. [Suspect]
     Active Substance: SODIUM CITRATE
     Indication: THROMBOSIS
     Dosage: 2.5 MG, QD
     Route: 065
  46. CALCITRIOL. [Suspect]
     Active Substance: CALCITRIOL
     Indication: VITAMIN D
     Dosage: 0.25 UG, QD
     Route: 048
  47. ASCORBIC ACID. [Concomitant]
     Active Substance: ASCORBIC ACID
     Indication: PRODUCT USED FOR UNKNOWN INDICATION
     Route: 065
  48. NORADRENALINE TARTRATE [Suspect]
     Active Substance: NOREPINEPHRINE BITARTRATE
     Dosage: 3 MILLIGRAM, QD
     Route: 048
  49. LUTEIN [Suspect]
     Active Substance: LUTEIN
     Indication: NUTRITIONAL SUPPLEMENTATION
     Dosage: 12.5 GRAM, PRN
     Route: 042
  50. LANTHANUM CARBONATE. [Suspect]
     Active Substance: LANTHANUM CARBONATE
     Indication: BLOOD PHOSPHORUS INCREASED
     Dosage: 500 MILLIGRAM, QD
     Route: 048
  51. NOREPINEPHRINE BITARTRATE. [Suspect]
     Active Substance: NOREPINEPHRINE BITARTRATE
     Dosage: UNK
     Route: 048
  52. BISACODYL. [Suspect]
     Active Substance: BISACODYL
     Dosage: 10 MILLIGRAM, QD
     Route: 054
  53. ALLOPURINOL. [Suspect]
     Active Substance: ALLOPURINOL
     Indication: BLOOD URIC ACID INCREASED
     Dosage: 100 MG
     Route: 048
  54. HEPARIN SODIUM IN DEXTROSE [Suspect]
     Active Substance: HEPARIN SODIUM
     Dosage: 50 MILLILITER, QD
     Route: 042
  55. SODIUM FERRIC GLUCONATE COMPLEX. [Suspect]
     Active Substance: SODIUM FERRIC GLUCONATE COMPLEX
     Dosage: 125 MILLIGRAM, 1/WEEK
     Route: 042
  56. ONDANSETRON [Suspect]
     Active Substance: ONDANSETRON
     Indication: NAUSEA
     Dosage: 8 MILLIGRAM, Q8HR
     Route: 042
  57. IPRATROPIUM BROMIDE. [Suspect]
     Active Substance: IPRATROPIUM BROMIDE
     Indication: DYSPNOEA
     Dosage: 1 DOSAGE FORM, Q6HR
     Route: 065
  58. MACROGOL 3350 [Suspect]
     Active Substance: POLYETHYLENE GLYCOL 3350
     Indication: PRODUCT USED FOR UNKNOWN INDICATION
     Dosage: 17 GRAM, QD
     Route: 048
  59. SALBUTAN [Concomitant]
     Active Substance: ALBUTEROL SULFATE
     Dosage: UNK UNK, QD
  60. VITAMIN D [Concomitant]
     Active Substance: VITAMIN D NOS
     Indication: OFF LABEL USE
     Route: 065
  61. PARACETAMOL [Suspect]
     Active Substance: ACETAMINOPHEN
     Indication: ANALGESIC THERAPY
     Dosage: 650 MILLIGRAM, QD
     Route: 048
  62. MELATONIN [Suspect]
     Active Substance: MELATONIN
     Indication: SLEEP DISORDER THERAPY
     Dosage: 3 MG, QD
     Route: 048
  63. ARANESP [Suspect]
     Active Substance: DARBEPOETIN ALFA
     Dosage: 10 MG, QOW
     Route: 042
  64. PHYTOMENADIONE [Suspect]
     Active Substance: PHYTONADIONE
     Indication: VITAMIN SUPPLEMENTATION
     Dosage: 5 MILLIGRAM, QD
     Route: 042
  65. GLUCOSE;HEPARIN SODIUM [Suspect]
     Active Substance: DEXTROSE\HEPARIN SODIUM
     Dosage: 250 UNK
     Route: 042
  66. PYRIDOXINE HYDROCHLORIDE. [Suspect]
     Active Substance: PYRIDOXINE HYDROCHLORIDE
     Indication: VITAMIN SUPPLEMENTATION
     Dosage: UNK
     Route: 048
  67. PYRIDOXINE HYDROCHLORIDE. [Suspect]
     Active Substance: PYRIDOXINE HYDROCHLORIDE
     Dosage: UNK UNK, QD
     Route: 048
  68. SODIUM FERRIC GLUCONATE COMPLEX. [Suspect]
     Active Substance: SODIUM FERRIC GLUCONATE COMPLEX
     Indication: IRON DEFICIENCY
     Dosage: 4.64 MILLIGRAM, Q4WEEKS
     Route: 042
  69. SODIUM FERRIC GLUCONATE COMPLEX. [Suspect]
     Active Substance: SODIUM FERRIC GLUCONATE COMPLEX
     Dosage: 4.64 MILLIGRAM, Q4WEEKS
     Route: 042
  70. ONDANSETRON [Suspect]
     Active Substance: ONDANSETRON
     Dosage: 12 MILLIGRAM, Q8HR
     Route: 042
  71. ONDANSETRON [Suspect]
     Active Substance: ONDANSETRON
     Dosage: 36 MILLIGRAM, Q8HR
     Route: 042
  72. METAMIZOLE SODIUM [Suspect]
     Active Substance: METAMIZOLE SODIUM
     Indication: VITAMIN SUPPLEMENTATION
     Dosage: 5 MILLIGRAM, QD
     Route: 042
  73. DISODIUM HYDROGEN CITRATE [Concomitant]
     Active Substance: DISODIUM HYDROGEN CITRATE
     Indication: THROMBOSIS
     Dosage: 2.5 MILLILITER, PRN
     Route: 065
  74. PHYTOMENADIONE [Suspect]
     Active Substance: PHYTONADIONE
     Indication: OFF LABEL USE
  75. GABAPENTIN. [Suspect]
     Active Substance: GABAPENTIN
     Indication: NEURALGIA
     Dosage: 100 MG, QD
     Route: 048
  76. VILANTEROL TRIFENATATE [Suspect]
     Active Substance: VILANTEROL TRIFENATATE
     Indication: PRODUCT USED FOR UNKNOWN INDICATION
     Dosage: UNK
     Route: 065
  77. GLUCOSE [Suspect]
     Active Substance: DEXTROSE
     Indication: NUTRITIONAL SUPPLEMENTATION
     Dosage: 12.5 MILLIGRAM, QD
     Route: 042
  78. HEPARIN SODIUM IN DEXTROSE [Suspect]
     Active Substance: HEPARIN SODIUM
     Dosage: 250 MILLILITER, QD
     Route: 042
  79. ONDANSETRON [Suspect]
     Active Substance: ONDANSETRON
     Indication: VOMITING
     Dosage: 4 MILLIGRAM, Q8HR
     Route: 042
  80. FLUTICASONE FUROATE;VILANTEROL TRIFENATATE [Suspect]
     Active Substance: FLUTICASONE FUROATE\VILANTEROL TRIFENATATE
     Indication: PRODUCT USED FOR UNKNOWN INDICATION
     Dosage: UNK
     Route: 065
  81. UMECLIDINIUM BROMIDE;VILANTEROL [Suspect]
     Active Substance: UMECLIDINIUM BROMIDE\VILANTEROL TRIFENATATE
     Indication: DYSPNOEA
     Dosage: 1 INTERNATIONAL UNIT, QD
     Route: 048
  82. ATROVENT [Suspect]
     Active Substance: IPRATROPIUM BROMIDE
     Indication: SLEEP DISORDER THERAPY
  83. AMIODARONE HYDROCHLORIDE. [Suspect]
     Active Substance: AMIODARONE HYDROCHLORIDE
     Indication: VENTRICULAR FIBRILLATION
     Dosage: UNK
     Route: 042
  84. SALBUTAMOL SULFATE [Suspect]
     Active Substance: ALBUTEROL SULFATE
     Indication: CHRONIC OBSTRUCTIVE PULMONARY DISEASE
     Dosage: UNK UNK, Q6H
     Route: 065
  85. VASOPRESSIN. [Suspect]
     Active Substance: VASOPRESSIN
     Indication: DRUG THERAPY
     Dosage: 50 MILLILITER, QD
     Route: 042
  86. DEXTROSE + SODIUM CHLORIDE [Suspect]
     Active Substance: DEXTROSE\SODIUM CHLORIDE
     Indication: NUTRITIONAL SUPPLEMENTATION
     Dosage: 12.5 MG, PRN
     Route: 042
  87. POTASSIUM CHLORIDE. [Concomitant]
     Active Substance: POTASSIUM CHLORIDE
     Indication: PRODUCT USED FOR UNKNOWN INDICATION
     Dosage: UNK
     Route: 065
  88. BETACAROTENE [Concomitant]
     Active Substance: .BETA.-CAROTENE
     Indication: PRODUCT USED FOR UNKNOWN INDICATION
     Route: 065

REACTIONS (16)
  - General physical health deterioration [Fatal]
  - Constipation [Fatal]
  - Appendicolith [Fatal]
  - Hyponatraemia [Fatal]
  - Appendicitis [Fatal]
  - Ascites [Fatal]
  - Product use in unapproved indication [Unknown]
  - Multiple organ dysfunction syndrome [Fatal]
  - Abdominal distension [Fatal]
  - Stress [Fatal]
  - Abdominal pain [Fatal]
  - Ventricular fibrillation [Fatal]
  - Cardiogenic shock [Fatal]
  - Vomiting [Fatal]
  - Sepsis [Fatal]
  - Nausea [Fatal]
